FAERS Safety Report 15621293 (Version 2)
Quarter: 2018Q4

REPORT INFORMATION
  Report Type: Report from Study
  Country: GT (occurrence: GT)
  Receive Date: 20181115
  Receipt Date: 20181127
  Transmission Date: 20190205
  Serious: Yes (Other)
  Sender: FDA-Public Use
  Company Number: GT-SAKK-2018SA309471AA

PATIENT
  Age: 42 Year
  Sex: Male

DRUGS (3)
  1. LANTUS [Suspect]
     Active Substance: INSULIN GLARGINE
     Indication: DIABETES MELLITUS
     Dosage: 30 IU, PRN
     Route: 058
  2. APIDRA [Suspect]
     Active Substance: INSULIN GLULISINE
     Indication: DIABETES MELLITUS
     Dosage: 4 IU EVERY 8 HOURS
     Route: 058
     Dates: start: 2017
  3. INSULIN GLARGINE [Suspect]
     Active Substance: INSULIN GLARGINE
     Indication: DIABETES MELLITUS
     Dosage: 30 IU, QD
     Route: 058
     Dates: start: 2017

REACTIONS (4)
  - Stent placement [Unknown]
  - Infarction [Recovered/Resolved]
  - Angioplasty [Unknown]
  - Effusion [Recovered/Resolved]

NARRATIVE: CASE EVENT DATE: 20180214
